FAERS Safety Report 18059477 (Version 11)
Quarter: 2025Q1

REPORT INFORMATION
  Report Type: Spontaneous
  Country: US (occurrence: US)
  Receive Date: 20200723
  Receipt Date: 20250117
  Transmission Date: 20250408
  Serious: Yes (Other)
  Sender: PFIZER
  Company Number: US-PFIZER INC-2020280005

PATIENT
  Age: 75 Year
  Sex: Female
  Weight: 61.696 kg

DRUGS (7)
  1. IBRANCE [Suspect]
     Active Substance: PALBOCICLIB
     Indication: Breast cancer metastatic
     Dates: start: 20200424
  2. IBRANCE [Suspect]
     Active Substance: PALBOCICLIB
     Dates: start: 20200601
  3. IBRANCE [Suspect]
     Active Substance: PALBOCICLIB
     Dates: end: 20200612
  4. IBRANCE [Suspect]
     Active Substance: PALBOCICLIB
     Dates: start: 20200622
  5. IBRANCE [Suspect]
     Active Substance: PALBOCICLIB
     Route: 048
     Dates: start: 20200726
  6. IBRANCE [Suspect]
     Active Substance: PALBOCICLIB
     Route: 048
  7. LETROZOLE [Concomitant]
     Active Substance: LETROZOLE
     Indication: Breast cancer metastatic
     Dosage: 2.5 MG, DAILY
     Dates: start: 20200424

REACTIONS (7)
  - Leukopenia [Unknown]
  - Neutropenia [Unknown]
  - Coronary artery disease [Unknown]
  - Product use issue [Unknown]
  - Full blood count decreased [Unknown]
  - Arthralgia [Unknown]
  - Dyspnoea [Unknown]
